FAERS Safety Report 20988502 (Version 4)
Quarter: 2022Q3

REPORT INFORMATION
  Report Type: Spontaneous
  Country: JP (occurrence: JP)
  Receive Date: 20220621
  Receipt Date: 20220831
  Transmission Date: 20221026
  Serious: Yes (Hospitalization, Other)
  Sender: FDA-Public Use
  Company Number: JP-PFIZER INC-PV202200003579

PATIENT
  Age: 96 Year
  Sex: Female
  Weight: 34 kg

DRUGS (10)
  1. PAXLOVID [Suspect]
     Active Substance: NIRMATRELVIR\RITONAVIR
     Indication: COVID-19 treatment
     Dosage: [PF-07321332 150 MG]/[RITONAVIR 100 MG]; 2X/DAY
     Route: 048
     Dates: start: 20220602, end: 20220605
  2. ADALAT CC [Concomitant]
     Active Substance: NIFEDIPINE
     Indication: Hypertension
     Dosage: 20 MG, DAILY
  3. ADALAT CC [Concomitant]
     Active Substance: NIFEDIPINE
     Dosage: 10 MG
     Dates: start: 20220628
  4. VONOPRAZAN FUMARATE [Concomitant]
     Active Substance: VONOPRAZAN FUMARATE
     Dosage: 10 MG, DAILY
     Dates: end: 20220605
  5. TEPRENONE [Concomitant]
     Active Substance: TEPRENONE
     Dosage: 100 MG, DAILY
     Dates: start: 20220615
  6. TEPRENONE [Concomitant]
     Active Substance: TEPRENONE
     Dosage: 100 MG, DAILY
     Dates: end: 20220605
  7. MIYA-BM [Concomitant]
     Active Substance: CLOSTRIDIUM BUTYRICUM SPORES STRAIN M-55
     Dosage: UNK
     Dates: start: 20220615
  8. MIYA-BM [Concomitant]
     Active Substance: CLOSTRIDIUM BUTYRICUM SPORES STRAIN M-55
     Dosage: UNK
     Dates: end: 20220605
  9. SUCRALFATE [Concomitant]
     Active Substance: SUCRALFATE
     Dosage: 30 ML, DAILY
     Dates: end: 20220605
  10. HERBALS [Concomitant]
     Active Substance: HERBALS
     Dosage: 2.5 G, DAILY
     Dates: end: 20220605

REACTIONS (17)
  - Oxygen saturation decreased [Recovering/Resolving]
  - Dyspnoea [Recovering/Resolving]
  - Renal disorder [Recovered/Resolved]
  - Cardiac failure [Unknown]
  - Weight increased [Unknown]
  - Blood potassium increased [Unknown]
  - Blood sodium decreased [Unknown]
  - Blood creatine increased [Recovered/Resolved]
  - N-terminal prohormone brain natriuretic peptide increased [Recovered/Resolved]
  - Dehydration [Unknown]
  - White blood cell count increased [Unknown]
  - Lymphocyte count decreased [Unknown]
  - Blood urea increased [Unknown]
  - Blood glucose increased [Unknown]
  - C-reactive protein increased [Unknown]
  - Alanine aminotransferase increased [Unknown]
  - Diarrhoea [Recovered/Resolved]

NARRATIVE: CASE EVENT DATE: 20220604
